FAERS Safety Report 22591215 (Version 3)
Quarter: 2023Q2

REPORT INFORMATION
  Report Type: Report from Study
  Country: CA (occurrence: CA)
  Receive Date: 20230612
  Receipt Date: 20230622
  Transmission Date: 20230721
  Serious: Yes (Hospitalization, Other)
  Sender: FDA-Public Use
  Company Number: CA-HLS-202301430

PATIENT
  Age: 57 Year
  Sex: Female

DRUGS (1)
  1. CLOZARIL [Suspect]
     Active Substance: CLOZAPINE
     Indication: Product used for unknown indication
     Route: 048
     Dates: start: 19950507

REACTIONS (7)
  - Atelectasis [Recovering/Resolving]
  - Dyspnoea [Unknown]
  - Glycosylated haemoglobin increased [Unknown]
  - Lung consolidation [Recovering/Resolving]
  - Pericardial effusion [Unknown]
  - Adrenomegaly [Unknown]
  - Obstructive airways disorder [Unknown]

NARRATIVE: CASE EVENT DATE: 20230501
